FAERS Safety Report 6348432-9 (Version None)
Quarter: 2009Q3

REPORT INFORMATION
  Report Type: 
  Country: None (occurrence: None)
  Receive Date: 20090911
  Receipt Date: 20090901
  Transmission Date: 20100115
  Serious: Yes (Hospitalization, Other)
  Sender: FDA-Public Use
  Company Number: US-BIOGENIDEC-2008BI023896

PATIENT
  Age: 55 Year
  Sex: Female

DRUGS (1)
  1. AVONEX [Suspect]
     Indication: MULTIPLE SCLEROSIS
     Route: 030
     Dates: start: 19990101

REACTIONS (7)
  - BLOOD HOMOCYSTEINE INCREASED [None]
  - CEREBRAL INFARCTION [None]
  - DYSLIPIDAEMIA [None]
  - HIP FRACTURE [None]
  - HYPERTENSION [None]
  - MULTIPLE SCLEROSIS [None]
  - VITAMIN B12 DEFICIENCY [None]
